FAERS Safety Report 5872054-7 (Version None)
Quarter: 2008Q3

REPORT INFORMATION
  Report Type: 
  Country: None (occurrence: None)
  Receive Date: 20080905
  Receipt Date: 20080829
  Transmission Date: 20090109
  Serious: Yes (Death, Hospitalization, Other)
  Sender: FDA-Public Use
  Company Number: US-ASTRAZENECA-2008AC02309

PATIENT
  Age: 59 Year
  Sex: Male

DRUGS (10)
  1. BICALUTAMIDE [Suspect]
     Indication: PROSTATE CANCER METASTATIC
  2. BICALUTAMIDE [Suspect]
     Dosage: PATIENT HAD TAKEN 4 DOSES
  3. CISPLATIN [Concomitant]
     Indication: CHEMOTHERAPY
     Dosage: 4 CYCLES
     Route: 042
  4. ETOPOSIDE [Concomitant]
     Indication: CHEMOTHERAPY
     Dosage: GIVEN ON DAY 1, PATIENT RECEIVED 4 CYLCES
     Route: 042
  5. ETOPOSIDE [Concomitant]
     Dosage: 100 MG/M2 TWICE A DAY ON DAYS 2-3, PATIENT RECEIVED 4 CYCLES
     Route: 048
  6. ACETAMINOPHEN AND OXYCODONE HCL [Concomitant]
  7. OLMESARTAN MEDOXOMIL [Concomitant]
  8. LEUPROLIDE ACETATE [Concomitant]
  9. OXYBUTYNIN [Concomitant]
  10. DOCUSATE SODIUM [Concomitant]

REACTIONS (7)
  - CARDIOMYOPATHY [None]
  - HEPATOTOXICITY [None]
  - HYPOTENSION [None]
  - MULTI-ORGAN FAILURE [None]
  - PYREXIA [None]
  - RENAL FAILURE ACUTE [None]
  - TACHYCARDIA [None]
